FAERS Safety Report 14713696 (Version 5)
Quarter: 2018Q4

REPORT INFORMATION
  Report Type: Spontaneous
  Country: BG (occurrence: BG)
  Receive Date: 20180404
  Receipt Date: 20181012
  Transmission Date: 20190204
  Serious: Yes (Other)
  Sender: FDA-Public Use
  Company Number: BG-BAYER-2018-059447

PATIENT
  Age: 50 Year
  Sex: Male

DRUGS (13)
  1. LUTETIUM (LU 177) [Suspect]
     Active Substance: LUTETIUM LU-177
     Indication: PROSTATE CANCER
     Dosage: UNK, UNKNOWN FREQ. (4 APPLICATIONS, BEGIN THERAPY WHEN THERE ARE METASTASES IN THE SOFT TISSUES)
  2. ABIRATERONE ACETATE. [Suspect]
     Active Substance: ABIRATERONE ACETATE
     Indication: PROSTATE CANCER
     Dosage: 1000 MG, UNK
     Route: 048
     Dates: start: 201705
  3. LEUPRORELIN ACETATE [Suspect]
     Active Substance: LEUPROLIDE ACETATE
     Indication: PROSTATE CANCER
  4. DOCETAXEL. [Suspect]
     Active Substance: DOCETAXEL
     Indication: PROSTATE CANCER
     Dosage: 5 COURSES, BECAUSE OF THE RISE IN PSA, CHEMOTHERAPY HAS BEGUN
  5. XGEVA [Suspect]
     Active Substance: DENOSUMAB
     Indication: PROSTATE CANCER
  6. CABAZITAXEL [Suspect]
     Active Substance: CABAZITAXEL
     Indication: PROSTATE CANCER
     Dosage: UNK
     Dates: start: 20160519, end: 20170126
  7. RADIUM-223 DICHLORIDE [Suspect]
     Active Substance: RADIUM RA-223 DICHLORIDE
     Indication: PROSTATE CANCER
     Dosage: 4.4MBQ
     Route: 042
  8. BICALUTAMIDE. [Suspect]
     Active Substance: BICALUTAMIDE
     Indication: PROSTATE CANCER
  9. RADIUM-223 DICHLORIDE [Suspect]
     Active Substance: RADIUM RA-223 DICHLORIDE
     Indication: PROSTATE CANCER
     Dosage: 4.4MBQ
     Route: 042
     Dates: start: 20170418
  10. RADIUM-223 DICHLORIDE [Suspect]
     Active Substance: RADIUM RA-223 DICHLORIDE
     Indication: PROSTATE CANCER
     Dosage: 4.4MBQ
     Route: 042
  11. ABIRATERONE. [Suspect]
     Active Substance: ABIRATERONE ACETATE
  12. DENOSUMAB [Suspect]
     Active Substance: DENOSUMAB
     Indication: PROSTATE CANCER
     Dosage: UNK
  13. RADIUM-223 DICHLORIDE [Suspect]
     Active Substance: RADIUM RA-223 DICHLORIDE
     Indication: PROSTATE CANCER
     Dosage: 4.4MBQ
     Route: 042
     Dates: end: 20170712

REACTIONS (11)
  - Metastases to soft tissue [None]
  - Fatigue [None]
  - Metastases to lung [None]
  - Prostatic specific antigen increased [Unknown]
  - Prostate cancer recurrent [Unknown]
  - Prostate cancer [Unknown]
  - Drug resistance [Unknown]
  - Metastases to lymph nodes [None]
  - Drug ineffective [Unknown]
  - Prostate cancer [Unknown]
  - Prostate cancer [None]

NARRATIVE: CASE EVENT DATE: 201706
